FAERS Safety Report 9288407 (Version 1)
Quarter: 2013Q2

REPORT INFORMATION
  Report Type: Spontaneous
  Country: DE (occurrence: DE)
  Receive Date: 20130514
  Receipt Date: 20130514
  Transmission Date: 20140414
  Serious: Yes (Disabling, Congenital Anomaly, Other)
  Sender: FDA-Public Use
  Company Number: DE-MYLANLABS-2013S1009591

PATIENT
  Age: 0 Year
  Sex: Male
  Weight: 2.91 kg

DRUGS (4)
  1. AMITRIPTYLIN [Suspect]
     Indication: PAIN
     Dosage: 75 [MG/D (BIS 25) ]/ SINCE 12/2009, FROM GW 25 REDUCED TO 50 AND 25 MG/D; STOPPED AT GW 28
     Route: 064
     Dates: start: 20111220
  2. PARACETAMOL [Concomitant]
     Dosage: 12-36 GESTATIONAL WEEK
     Route: 064
  3. AMOXICILLIN [Concomitant]
     Dosage: 19-20 GESTATIONAL WEEK
     Route: 064
  4. FEMIBION [Concomitant]
     Indication: PROPHYLAXIS OF NEURAL TUBE DEFECT
     Dosage: 0.4 [MG/D ]/ AND PRECONCEPTIONAL
     Route: 064
     Dates: start: 20111220, end: 20120920

REACTIONS (8)
  - Microgenia [Not Recovered/Not Resolved]
  - Accessory auricle [Not Recovered/Not Resolved]
  - Congenital aural fistula [Unknown]
  - Exposure during pregnancy [Unknown]
  - Small for dates baby [Not Recovered/Not Resolved]
  - Hypoacusis [Not Recovered/Not Resolved]
  - Torticollis [Unknown]
  - Coordination abnormal [Unknown]
